FAERS Safety Report 10158604 (Version 1)
Quarter: 2014Q2

REPORT INFORMATION
  Report Type: Report from Study
  Country: GB (occurrence: GB)
  Receive Date: 20140508
  Receipt Date: 20140508
  Transmission Date: 20141212
  Serious: Yes (Death)
  Sender: FDA-Public Use
  Company Number: GB-AMGEN-GBRCT2014033282

PATIENT
  Age: 62 Year
  Sex: Male
  Weight: 79.1 kg

DRUGS (9)
  1. ETANERCEPT [Suspect]
     Indication: PRODUCT USED FOR UNKNOWN INDICATION
     Dosage: 50 MG, QWK
     Route: 065
     Dates: start: 20110920
  2. MELOXICAM [Concomitant]
     Dosage: UNK
  3. FOLIC ACID [Concomitant]
     Dosage: UNK
  4. PARACETAMOL [Concomitant]
     Dosage: UNK
  5. AMITRIPTYLINE [Concomitant]
     Dosage: UNK
     Dates: start: 20121119
  6. LANSOPRAZOLE [Concomitant]
     Dosage: UNK
  7. TRAMADOL [Concomitant]
     Dosage: UNK
  8. METHOTREXATE [Concomitant]
     Dosage: UNK
  9. DOCUSATE SODIUM [Concomitant]
     Dosage: UNK
     Dates: start: 20120417

REACTIONS (4)
  - Intestinal obstruction [Fatal]
  - Congenital megacolon [Fatal]
  - Psoriatic arthropathy [Fatal]
  - Angina pectoris [Fatal]
